FAERS Safety Report 12082880 (Version 1)
Quarter: 2016Q1

REPORT INFORMATION
  Report Type: Spontaneous
  Country: US (occurrence: US)
  Receive Date: 20160217
  Receipt Date: 20160217
  Transmission Date: 20160526
  Serious: No
  Sender: FDA-Public Use
  Company Number: US-ASTRAZENECA-2016SE13078

PATIENT
  Age: 27986 Day
  Sex: Female
  Weight: 59 kg

DRUGS (9)
  1. CLOPIDOGREL [Concomitant]
     Active Substance: CLOPIDOGREL BISULFATE
  2. ATORVASTATIN [Concomitant]
     Active Substance: ATORVASTATIN
  3. FASLODEX [Suspect]
     Active Substance: FULVESTRANT
     Indication: BREAST CANCER METASTATIC
     Route: 030
  4. ISOSORBIDE. [Concomitant]
     Active Substance: ISOSORBIDE
  5. RAMIPRIL. [Concomitant]
     Active Substance: RAMIPRIL
  6. CARVEDILOL. [Concomitant]
     Active Substance: CARVEDILOL
  7. MORPHINE [Concomitant]
     Active Substance: MORPHINE
  8. OXYCODONE [Concomitant]
     Active Substance: OXYCODONE
  9. FASLODEX [Suspect]
     Active Substance: FULVESTRANT
     Indication: BREAST CANCER METASTATIC
     Route: 030
     Dates: start: 20160112

REACTIONS (2)
  - Injection site pain [Not Recovered/Not Resolved]
  - Gait disturbance [Not Recovered/Not Resolved]

NARRATIVE: CASE EVENT DATE: 20160116
